FAERS Safety Report 21280718 (Version 3)
Quarter: 2022Q4

REPORT INFORMATION
  Report Type: Spontaneous
  Country: US (occurrence: None)
  Receive Date: 20220901
  Receipt Date: 20221014
  Transmission Date: 20230113
  Serious: Yes (Hospitalization, Other)
  Sender: FDA-Public Use
  Company Number: 2022A297874

PATIENT
  Age: 853 Month
  Sex: Male
  Weight: 83.5 kg

DRUGS (1)
  1. BYDUREON BCISE [Suspect]
     Active Substance: EXENATIDE
     Indication: Type 2 diabetes mellitus
     Route: 058
     Dates: start: 2018

REACTIONS (5)
  - Myocardial infarction [Unknown]
  - Cardiac disorder [Recovered/Resolved]
  - Injection site haemorrhage [Unknown]
  - Body height decreased [Not Recovered/Not Resolved]
  - Device leakage [Unknown]

NARRATIVE: CASE EVENT DATE: 20200901
